FAERS Safety Report 7903070-9 (Version None)
Quarter: 2011Q4

REPORT INFORMATION
  Report Type: 
  Country: None (occurrence: None)
  Receive Date: 20111107
  Receipt Date: 20111107
  Transmission Date: 20120403
  Serious: Yes (Other)
  Sender: FDA-Public Use
  Company Number: CA-GDP-11412211

PATIENT
  Sex: Female

DRUGS (1)
  1. DIFFERIN [Suspect]
     Dosage: (1 DF QD 2 TOPICAL), (1 DF QD TOPICAL)
     Route: 061
     Dates: start: 20080901

REACTIONS (18)
  - ALOPECIA [None]
  - DEPRESSION [None]
  - DIZZINESS [None]
  - SKIN INFECTION [None]
  - ANXIETY [None]
  - FUNGAL INFECTION [None]
  - TONGUE DISCOLOURATION [None]
  - RASH ERYTHEMATOUS [None]
  - STRESS [None]
  - APPLICATION SITE REACTION [None]
  - NAUSEA [None]
  - GINGIVAL DISCOLOURATION [None]
  - DRY SKIN [None]
  - SKIN IRRITATION [None]
  - SCAR [None]
  - TOOTH DISCOLOURATION [None]
  - THERMAL BURN [None]
  - CONTUSION [None]
